FAERS Safety Report 8995682 (Version 1)
Quarter: 2013Q1

REPORT INFORMATION
  Report Type: Report from Study
  Country: US (occurrence: US)
  Receive Date: 20130103
  Receipt Date: 20130103
  Transmission Date: 20140127
  Serious: No
  Sender: FDA-Public Use
  Company Number: US-ABBOTT-12P-163-0945687-00

PATIENT
  Age: 54 None
  Sex: Female
  Weight: 104.42 kg

DRUGS (3)
  1. SYNTHROID [Suspect]
     Indication: HYPOTHYROIDISM
     Dates: start: 1996, end: 201206
  2. SYNTHROID [Suspect]
     Dosage: 75 MCG DAILY
     Dates: start: 20120614
  3. SYNTHROID 88 MCG [Suspect]
     Indication: HYPOTHYROIDISM
     Dates: start: 20120612, end: 20120613

REACTIONS (23)
  - Amnesia [Recovered/Resolved]
  - Fatigue [Recovered/Resolved]
  - Visual impairment [Recovered/Resolved]
  - Fatigue [Recovered/Resolved]
  - Eyelid oedema [Recovered/Resolved]
  - Thyroid function test abnormal [Recovered/Resolved]
  - Product physical issue [Unknown]
  - Unevaluable event [Not Recovered/Not Resolved]
  - Feeling abnormal [Unknown]
  - Depression [Recovered/Resolved]
  - Mood swings [Recovered/Resolved]
  - Dry mouth [Recovered/Resolved]
  - Crying [Recovered/Resolved]
  - Nervousness [Recovered/Resolved]
  - Dizziness [Recovered/Resolved]
  - Headache [Recovered/Resolved]
  - Decreased appetite [Recovered/Resolved]
  - Sluggishness [Recovered/Resolved]
  - Generalised oedema [Recovered/Resolved]
  - Drug ineffective [Unknown]
  - Bowel movement irregularity [Recovered/Resolved]
  - Weight increased [Recovered/Resolved]
  - Emotional disorder [Recovered/Resolved]
